FAERS Safety Report 8887193 (Version 3)
Quarter: 2014Q4

REPORT INFORMATION
  Report Type: Report from Study
  Country: US (occurrence: US)
  Receive Date: 20121105
  Receipt Date: 20141119
  Transmission Date: 20150529
  Serious: Yes (Hospitalization)
  Sender: FDA-Public Use
  Company Number: US-ELI_LILLY_AND_COMPANY-US201210008403

PATIENT
  Age: 52 Year
  Sex: Female
  Weight: 55.8 kg

DRUGS (10)
  1. DILAUDID [Concomitant]
     Active Substance: HYDROMORPHONE HYDROCHLORIDE
     Dosage: 2 MG, EVERY 3 HRS, SEVERE PAIN
     Route: 042
     Dates: start: 20121010, end: 20121012
  2. DILAUDID [Concomitant]
     Active Substance: HYDROMORPHONE HYDROCHLORIDE
     Dosage: 4 MG, EVERY 3 HRS, MODERATE PAIN
     Route: 048
     Dates: start: 20121012, end: 20121013
  3. DILAUDID [Concomitant]
     Active Substance: HYDROMORPHONE HYDROCHLORIDE
     Indication: PAIN
     Dosage: 1 MG, EVERY 3 HRS, MODERATE PAIN
     Route: 042
     Dates: start: 20121010, end: 20121012
  4. GEMCITABINE HYDROCHLORIDE. [Suspect]
     Active Substance: GEMCITABINE HYDROCHLORIDE
     Indication: ADULT T-CELL LYMPHOMA/LEUKAEMIA
     Dosage: 1000 MG/M2, DAYS 1 AND 15 EACH CYCLE
     Route: 042
     Dates: start: 20121009
  5. DILAUDID [Concomitant]
     Active Substance: HYDROMORPHONE HYDROCHLORIDE
     Dosage: 8 MG, EVERY 3 HRS, SEVERE PAIN
     Route: 048
     Dates: start: 20121012, end: 20121013
  6. NEUPOGEN [Concomitant]
     Active Substance: FILGRASTIM
     Indication: FEBRILE NEUTROPENIA
     Dosage: UNK
     Dates: end: 20121007
  7. LEVAQUIN [Concomitant]
     Active Substance: LEVOFLOXACIN
     Indication: PYREXIA
     Dosage: UNK
     Dates: start: 201210
  8. OXALIPLATIN. [Suspect]
     Active Substance: OXALIPLATIN
     Indication: ADULT T-CELL LYMPHOMA/LEUKAEMIA
     Dosage: 100 MG/M2, 28 DAY CYCLE
     Route: 042
     Dates: start: 20121009
  9. CEFEPIME [Concomitant]
     Active Substance: CEFEPIME\CEFEPIME HYDROCHLORIDE
     Dosage: UNK
     Dates: start: 20121009, end: 20121013
  10. IBUPROFEN. [Concomitant]
     Active Substance: IBUPROFEN

REACTIONS (1)
  - Enteritis [Recovered/Resolved]

NARRATIVE: CASE EVENT DATE: 20121010
